FAERS Safety Report 20383987 (Version 1)
Quarter: 2022Q1

REPORT INFORMATION
  Report Type: Spontaneous
  Country: MY (occurrence: MY)
  Receive Date: 20220127
  Receipt Date: 20220127
  Transmission Date: 20220423
  Serious: Yes (Hospitalization)
  Sender: FDA-Public Use
  Company Number: MY-TEVA-2022-MY-2001073

PATIENT
  Age: 54 Year
  Sex: Male

DRUGS (2)
  1. PREDNISOLONE [Suspect]
     Active Substance: PREDNISOLONE
     Indication: Lower motor neurone lesion
     Dosage: 60 MILLIGRAM DAILY;
     Route: 065
  2. PREDNISOLONE [Suspect]
     Active Substance: PREDNISOLONE
     Indication: Bell^s palsy
     Dosage: 50 MILLIGRAM DAILY;
     Route: 065

REACTIONS (2)
  - Therapy non-responder [Unknown]
  - Paraspinal abscess [Recovering/Resolving]
